FAERS Safety Report 8872326 (Version 1)
Quarter: 2012Q4

REPORT INFORMATION
  Report Type: 
  Country: US (occurrence: US)
  Receive Date: 20121026
  Receipt Date: 20121026
  Transmission Date: 20130627
  Serious: No
  Sender: FDA-Public Use
  Company Number: US-AMGEN-USASP2012049304

PATIENT
  Sex: Female

DRUGS (11)
  1. ENBREL [Suspect]
     Indication: PRODUCT USED FOR UNKNOWN INDICATION
     Dosage: 50 mg, qwk
     Route: 058
  2. PHENOBARB                          /00023201/ [Concomitant]
     Dosage: 15 mg, UNK
  3. KEPPRA [Concomitant]
     Dosage: 500 mg, UNK
  4. SULFASALAZIN [Concomitant]
     Dosage: 500 mg, UNK
  5. HYDROXYCHLOROQUINE [Concomitant]
     Dosage: 200 mg, UNK
  6. ARAVA [Concomitant]
     Dosage: 10 mg, UNK
  7. FOLIC ACID [Concomitant]
     Dosage: UNK
  8. LISINOPRIL [Concomitant]
     Dosage: 2.5 mg, UNK
  9. CELEBREX [Concomitant]
     Dosage: 50 mg, UNK
  10. MOBIC [Concomitant]
     Dosage: 7.5 mg, UNK
  11. SIMVASTATIN [Concomitant]
     Dosage: 5 mg, UNK

REACTIONS (4)
  - Kidney infection [Unknown]
  - Injection site erythema [Unknown]
  - Injection site swelling [Unknown]
  - Weight increased [Unknown]
